FAERS Safety Report 20358798 (Version 3)
Quarter: 2022Q3

REPORT INFORMATION
  Report Type: Report from Study
  Country: CO (occurrence: CO)
  Receive Date: 20220120
  Receipt Date: 20220824
  Transmission Date: 20221027
  Serious: Yes (Other)
  Sender: FDA-Public Use
  Company Number: CO-TAKEDA-2022TUS003297

PATIENT
  Age: 46 Year
  Sex: Female
  Weight: 57 kg

DRUGS (2)
  1. VEDOLIZUMAB [Suspect]
     Active Substance: VEDOLIZUMAB
     Indication: Colitis ulcerative
     Dosage: 300 MILLIGRAM
     Route: 042
     Dates: start: 20211123
  2. VEDOLIZUMAB [Suspect]
     Active Substance: VEDOLIZUMAB
     Dosage: 300 MILLIGRAM
     Route: 042
     Dates: start: 20220121, end: 20220121

REACTIONS (4)
  - COVID-19 [Recovering/Resolving]
  - Secretion discharge [Recovered/Resolved]
  - Weight increased [Recovering/Resolving]
  - Tuberculin test positive [Unknown]

NARRATIVE: CASE EVENT DATE: 20220101
